FAERS Safety Report 11347183 (Version 1)
Quarter: 2015Q3

REPORT INFORMATION
  Report Type: Spontaneous
  Country: US (occurrence: US)
  Receive Date: 20150803
  Receipt Date: 20150803
  Transmission Date: 20151125
  Serious: Yes (Other)
  Sender: FDA-Public Use
  Company Number: US-ELI_LILLY_AND_COMPANY-US201104003768

PATIENT
  Age: 35 Year
  Sex: Female

DRUGS (3)
  1. ZYPREXA [Suspect]
     Active Substance: OLANZAPINE
     Dosage: UNK, UNKNOWN
  2. ABILIFY [Concomitant]
     Active Substance: ARIPIPRAZOLE
     Dosage: UNK, UNKNOWN
  3. ZYPREXA [Suspect]
     Active Substance: OLANZAPINE
     Dosage: 20 MG, QD

REACTIONS (3)
  - Suicidal ideation [Unknown]
  - Weight increased [Unknown]
  - Glucose tolerance impaired [Unknown]
